FAERS Safety Report 10405847 (Version 4)
Quarter: 2014Q4

REPORT INFORMATION
  Report Type: Spontaneous
  Country: JP (occurrence: JP)
  Receive Date: 20140825
  Receipt Date: 20141125
  Transmission Date: 20150528
  Serious: Yes (Hospitalization, Disabling, Other)
  Sender: FDA-Public Use
  Company Number: JP-PFIZER INC-2014230596

PATIENT
  Age: 65 Year
  Sex: Male
  Weight: 87.7 kg

DRUGS (2)
  1. ODYNE [Suspect]
     Active Substance: FLUTAMIDE
     Dosage: 125 MG, 3X/DAY
     Route: 048
     Dates: start: 20100122, end: 20140808
  2. SALAZOPYRIN [Suspect]
     Active Substance: SULFASALAZINE
     Indication: COLITIS ULCERATIVE
     Dosage: 1000 MG, 3X/DAY
     Route: 048
     Dates: start: 20070717, end: 20140808

REACTIONS (5)
  - Blood pressure increased [Recovered/Resolved]
  - Cerebral aneurysm perforation [Recovered/Resolved with Sequelae]
  - Lymphocyte stimulation test positive [Unknown]
  - Alveolar proteinosis [Recovering/Resolving]
  - Subarachnoid haemorrhage [Recovered/Resolved with Sequelae]

NARRATIVE: CASE EVENT DATE: 20140806
